FAERS Safety Report 21632176 (Version 1)
Quarter: 2022Q4

REPORT INFORMATION
  Report Type: Spontaneous
  Country: IT (occurrence: IT)
  Receive Date: 20221123
  Receipt Date: 20221123
  Transmission Date: 20230112
  Serious: Yes (Other)
  Sender: FDA-Public Use
  Company Number: IT-SUN PHARMACEUTICAL INDUSTRIES LTD-2022R1-365229

PATIENT
  Age: 49 Year
  Sex: Female

DRUGS (2)
  1. DOXORUBICIN [Suspect]
     Active Substance: DOXORUBICIN
     Indication: Desmoid tumour
     Dosage: 1 CYCLE
     Route: 065
  2. DACARBAZINE [Suspect]
     Active Substance: DACARBAZINE
     Indication: Desmoid tumour
     Dosage: 1 CYCLE
     Route: 065

REACTIONS (4)
  - Anaemia [Unknown]
  - Abdominal pain [Unknown]
  - Duodenal perforation [Unknown]
  - Small intestinal perforation [Unknown]
